FAERS Safety Report 15193818 (Version 1)
Quarter: 2018Q3

REPORT INFORMATION
  Report Type: Spontaneous
  Country: AU (occurrence: AU)
  Receive Date: 20180725
  Receipt Date: 20180725
  Transmission Date: 20181010
  Serious: Yes (Hospitalization)
  Sender: FDA-Public Use
  Company Number: PHHY2018AU047899

PATIENT
  Age: 56 Year
  Sex: Female
  Weight: 84 kg

DRUGS (2)
  1. METHOTREXATE. [Suspect]
     Active Substance: METHOTREXATE
     Indication: RHEUMATOID ARTHRITIS
     Dosage: 30 MG, QW
     Route: 048
  2. METHOTREXATE. [Suspect]
     Active Substance: METHOTREXATE
     Dosage: 125 DF, ONCE/SINGLE
     Route: 048

REACTIONS (11)
  - Abdominal pain [Unknown]
  - Hypoxia [Recovering/Resolving]
  - Gastrointestinal toxicity [Unknown]
  - Sedation [Recovering/Resolving]
  - Pyrexia [Unknown]
  - Diarrhoea [Unknown]
  - Bone marrow failure [Recovering/Resolving]
  - Pneumonia aspiration [Recovering/Resolving]
  - Toxicity to various agents [Unknown]
  - Mucosal ulceration [Unknown]
  - Overdose [Unknown]
